FAERS Safety Report 9950993 (Version 1)
Quarter: 2014Q1

REPORT INFORMATION
  Report Type: Report from Study
  Country: US (occurrence: US)
  Receive Date: 20140304
  Receipt Date: 20140304
  Transmission Date: 20141002
  Serious: Yes (Other)
  Sender: FDA-Public Use
  Company Number: US-ABBVIE-13P-163-1066747-00

PATIENT
  Age: 62 Year
  Sex: Female

DRUGS (6)
  1. HUMIRA [Suspect]
     Indication: PSORIATIC ARTHROPATHY
     Dates: start: 2005, end: 2008
  2. HUMIRA [Suspect]
     Dates: start: 2008, end: 201302
  3. LEVOXYL [Concomitant]
     Indication: HYPOTHYROIDISM
  4. LEXAPRO [Concomitant]
     Indication: ANXIETY
  5. ATENOLOL [Concomitant]
     Indication: ATRIAL FIBRILLATION
  6. FLECAINIDE [Concomitant]
     Indication: CARDIAC DISORDER

REACTIONS (2)
  - Breast cancer female [Recovered/Resolved]
  - Pain [Unknown]
